FAERS Safety Report 4615000-6 (Version None)
Quarter: 2005Q1

REPORT INFORMATION
  Report Type: 
  Country: None (occurrence: None)
  Receive Date: 20050315
  Receipt Date: 20050307
  Transmission Date: 20050727
  Serious: Yes (Death, Life-Threatening, Hospitalization)
  Sender: FDA-Public Use
  Company Number: 2004240196US

PATIENT
  Age: 44 Year
  Sex: Male
  Weight: 65 kg

DRUGS (17)
  1. CAMPTOSAR [Suspect]
     Indication: METASTATIC NEOPLASM
     Dosage: 183, INTRAVENOUS
     Route: 042
     Dates: start: 20040521, end: 20040702
  2. GEMCITABINE (GEMCITABINE) [Suspect]
     Indication: METASTATIC NEOPLASM
     Dosage: 1830 MG (CYCLIC), INTRAVENOUS
     Route: 042
     Dates: start: 20040521, end: 20040702
  3. GEFITINIB (GEFITINIB) [Suspect]
     Indication: METASTATIC NEOPLASM
     Dosage: 250 MG (CYCLIC)
     Dates: start: 20040722, end: 20040801
  4. CLOPIDOGREL BISULFATE [Concomitant]
  5. PROMETHAZINE HYDROCHLORIDE TAB [Concomitant]
  6. OXYCODONE (OXYCODONE) [Concomitant]
  7. ISOSORBIDE MONONITRATE [Concomitant]
  8. LORAZEPAM [Concomitant]
  9. ZOLPIDEM TARTRATE [Concomitant]
  10. DIGOXIN [Concomitant]
  11. PAROXETINE HCL [Concomitant]
  12. PREDNISONE [Concomitant]
  13. WARFARIN SODIUM [Concomitant]
  14. LACTULOSE [Concomitant]
  15. MORPHINE SULFATE [Concomitant]
  16. SUCRALFATE [Concomitant]
  17. SENOKOT-S (DOCUSATE SODIUM, SENNA) [Concomitant]

REACTIONS (19)
  - ALANINE AMINOTRANSFERASE INCREASED [None]
  - ASPARTATE AMINOTRANSFERASE INCREASED [None]
  - BLOOD ALKALINE PHOSPHATASE INCREASED [None]
  - BLOOD BILIRUBIN INCREASED [None]
  - BLOOD LACTATE DEHYDROGENASE INCREASED [None]
  - COAGULOPATHY [None]
  - DISEASE PROGRESSION [None]
  - FAECAL OCCULT BLOOD POSITIVE [None]
  - GASTROINTESTINAL HAEMORRHAGE [None]
  - HAEMATEMESIS [None]
  - HAEMATOCHEZIA [None]
  - HAEMOGLOBIN DECREASED [None]
  - HEPATIC FAILURE [None]
  - INTERNATIONAL NORMALISED RATIO INCREASED [None]
  - MELAENA [None]
  - NAUSEA [None]
  - PLATELET COUNT DECREASED [None]
  - PROTHROMBIN TIME PROLONGED [None]
  - VOMITING [None]
